FAERS Safety Report 13388376 (Version 2)
Quarter: 2017Q3

REPORT INFORMATION
  Report Type: Report from Study
  Country: US (occurrence: US)
  Receive Date: 20170330
  Receipt Date: 20170830
  Transmission Date: 20171127
  Serious: No
  Sender: FDA-Public Use
  Company Number: PHEH2017US008982

PATIENT
  Age: 26 Year
  Sex: Female

DRUGS (1)
  1. AFINITOR [Suspect]
     Active Substance: EVEROLIMUS
     Indication: ANGIOMYOLIPOMA
     Dosage: 2.5 MG, QD
     Route: 048
     Dates: start: 20160504

REACTIONS (5)
  - Anger [Unknown]
  - Aggression [Unknown]
  - Drug level decreased [Recovering/Resolving]
  - Screaming [Unknown]
  - Abnormal behaviour [Unknown]

NARRATIVE: CASE EVENT DATE: 20160601
